FAERS Safety Report 21135876 (Version 5)
Quarter: 2022Q3

REPORT INFORMATION
  Report Type: Spontaneous
  Country: US (occurrence: US)
  Receive Date: 20220727
  Receipt Date: 20220826
  Transmission Date: 20221027
  Serious: No
  Sender: FDA-Public Use
  Company Number: US-UNITED THERAPEUTICS-UNT-2022-013514

PATIENT
  Age: 24 Year
  Sex: Female
  Weight: 69.977 kg

DRUGS (8)
  1. REMODULIN [Suspect]
     Active Substance: TREPROSTINIL
     Indication: Pulmonary arterial hypertension
     Dosage: 0.017 ?G/KG, CONTINUING
     Route: 041
     Dates: start: 202206
  2. REMODULIN [Suspect]
     Active Substance: TREPROSTINIL
     Dosage: 0.018 ?G/KG, CONTINUING
     Route: 041
     Dates: start: 202206
  3. REMODULIN [Suspect]
     Active Substance: TREPROSTINIL
     Dosage: 0.0275 ?G/KG, CONTINUING
     Route: 041
     Dates: start: 2022
  4. REMODULIN [Suspect]
     Active Substance: TREPROSTINIL
     Dosage: 0.012 ?G/KG, CONTINUING
     Route: 041
     Dates: start: 2022, end: 2022
  5. TADALAFIL [Suspect]
     Active Substance: TADALAFIL
     Indication: Product used for unknown indication
     Dosage: UNK
     Route: 065
  6. TADALAFIL [Suspect]
     Active Substance: TADALAFIL
     Dosage: 40 MG
     Route: 065
  7. ADEMPAS [Suspect]
     Active Substance: RIOCIGUAT
     Indication: Product used for unknown indication
     Dosage: UNK
     Route: 065
  8. ELIQUIS [Concomitant]
     Active Substance: APIXABAN
     Indication: Product used for unknown indication
     Dosage: UNK
     Route: 065

REACTIONS (18)
  - Oedema peripheral [Unknown]
  - Headache [Unknown]
  - Diarrhoea [Unknown]
  - Nausea [Recovered/Resolved]
  - Abdominal discomfort [Unknown]
  - Pain in jaw [Unknown]
  - Arthralgia [Unknown]
  - Fatigue [Unknown]
  - Drug intolerance [Unknown]
  - Dyspnoea [Recovered/Resolved]
  - Phlebitis [Unknown]
  - Injection site erythema [Unknown]
  - Injection site warmth [Unknown]
  - Injection site swelling [Recovering/Resolving]
  - Injection site pain [Recovering/Resolving]
  - Injection site mass [Unknown]
  - Mucous stools [Unknown]
  - Pruritus [Unknown]

NARRATIVE: CASE EVENT DATE: 20020601
